FAERS Safety Report 4964779-2 (Version None)
Quarter: 2006Q2

REPORT INFORMATION
  Report Type: 
  Country: None (occurrence: None)
  Receive Date: 20060406
  Receipt Date: 20060330
  Transmission Date: 20061013
  Serious: Yes (Hospitalization)
  Sender: FDA-Public Use
  Company Number: CA-ROCHE-442655

PATIENT
  Age: 78 Year
  Sex: Male
  Weight: 63 kg

DRUGS (10)
  1. TAMIFLU [Suspect]
     Route: 048
     Dates: start: 20060228, end: 20060303
  2. ASPIRIN [Concomitant]
     Route: 048
     Dates: start: 20060228, end: 20060303
  3. ATORVASTATIN CALCIUM [Concomitant]
     Route: 048
     Dates: start: 20060228, end: 20060307
  4. BISACODYL [Concomitant]
     Dosage: ADMINISTERED DAILY OR AS REQUIRED.
     Route: 048
     Dates: start: 20060228, end: 20060303
  5. DOCUSATE SODIUM [Concomitant]
     Dosage: ADMINISTERED DAILY OR AS REQUIRED.
     Route: 048
     Dates: start: 20060228, end: 20060303
  6. FOLIC ACID [Concomitant]
     Route: 048
     Dates: start: 20060228
  7. HYDROCHLOROTHIAZIDE [Concomitant]
     Route: 048
     Dates: start: 20060228
  8. HYDROMORPHONE [Concomitant]
     Dosage: ADMINISTERED EVERY 4 HOURS AS REQUIRED.
     Route: 048
     Dates: start: 20060228
  9. LORAZEPAM [Concomitant]
     Dosage: ADMINISTERED AS REQUIRED.
     Dates: start: 20060228, end: 20060303
  10. MILK OF MAGNESIA TAB [Concomitant]
     Route: 048
     Dates: start: 20060228, end: 20060303

REACTIONS (2)
  - DUODENAL ULCER HAEMORRHAGE [None]
  - HELICOBACTER INFECTION [None]
